FAERS Safety Report 19432448 (Version 1)
Quarter: 2021Q2

REPORT INFORMATION
  Report Type: Spontaneous
  Country: US (occurrence: US)
  Receive Date: 20210617
  Receipt Date: 20210617
  Transmission Date: 20210717
  Serious: Yes (Hospitalization)
  Sender: FDA-Public Use
  Company Number: US-TEVA-2021-US-1922449

PATIENT
  Age: 81 Year
  Sex: Female

DRUGS (7)
  1. PROTONIX [Concomitant]
     Active Substance: PANTOPRAZOLE SODIUM
     Indication: PRODUCT USED FOR UNKNOWN INDICATION
     Dosage: 40 MILLIGRAM DAILY;
     Route: 065
  2. NITROFURANTOIN. [Suspect]
     Active Substance: NITROFURANTOIN
     Indication: EVIDENCE BASED TREATMENT
  3. GEMFIBROZIL. [Concomitant]
     Active Substance: GEMFIBROZIL
     Indication: PRODUCT USED FOR UNKNOWN INDICATION
     Dosage: 1200 MILLIGRAM DAILY;
     Route: 065
  4. MULTIVITAMIN [Concomitant]
     Active Substance: VITAMINS
     Indication: VITAMIN SUPPLEMENTATION
     Dosage: 1 DOSAGE FORMS DAILY;
     Route: 065
  5. NITROFURANTOIN. [Suspect]
     Active Substance: NITROFURANTOIN
     Indication: PYELONEPHRITIS ACUTE
     Dosage: 200 MILLIGRAM DAILY;
     Route: 065
  6. CLONAZEPAM. [Concomitant]
     Active Substance: CLONAZEPAM
     Indication: PRODUCT USED FOR UNKNOWN INDICATION
     Dosage: 1 MILLIGRAM DAILY; CLONAZEPAM 1 MG NIGHTLY
     Route: 065
  7. MEMANTINE?DONEPEZIL [Concomitant]
     Indication: PRODUCT USED FOR UNKNOWN INDICATION
     Dosage: 1 DOSAGE FORMS DAILY;
     Route: 065

REACTIONS (3)
  - Pulmonary toxicity [Recovering/Resolving]
  - Pleural effusion [Recovering/Resolving]
  - Interstitial lung disease [Recovering/Resolving]
